FAERS Safety Report 22793075 (Version 8)
Quarter: 2025Q2

REPORT INFORMATION
  Report Type: Report from Study
  Country: US (occurrence: US)
  Receive Date: 20230807
  Receipt Date: 20250609
  Transmission Date: 20250717
  Serious: Yes (Hospitalization, Other)
  Sender: NOVARTIS
  Company Number: US-002147023-NVSC2023US170799

PATIENT
  Age: 44 Year
  Sex: Female

DRUGS (3)
  1. ILARIS [Suspect]
     Active Substance: CANAKINUMAB
     Indication: Cryopyrin associated periodic syndrome
     Dosage: 150 MG, Q4W
     Route: 058
     Dates: start: 20191104
  2. ILARIS [Suspect]
     Active Substance: CANAKINUMAB
     Dosage: 300 MG, Q4W
     Route: 058
  3. ILARIS [Suspect]
     Active Substance: CANAKINUMAB
     Dosage: 300 MG, Q4W, OTHER
     Route: 058
     Dates: start: 20211110

REACTIONS (9)
  - Abscess [Unknown]
  - Staphylococcal infection [Unknown]
  - Cryopyrin associated periodic syndrome [Unknown]
  - Arthralgia [Unknown]
  - Condition aggravated [Unknown]
  - Chest pain [Unknown]
  - Tachycardia [Unknown]
  - Illness [Unknown]
  - Wound infection [Unknown]

NARRATIVE: CASE EVENT DATE: 20240708
